FAERS Safety Report 23425192 (Version 1)
Quarter: 2024Q1

REPORT INFORMATION
  Report Type: Spontaneous
  Country: IN (occurrence: IN)
  Receive Date: 20240121
  Receipt Date: 20240121
  Transmission Date: 20240410
  Serious: Yes (Hospitalization, Other)
  Sender: FDA-Public Use
  Company Number: IN-GRUNENTHAL-2024-100460

PATIENT
  Age: 2 Decade
  Sex: Male

DRUGS (3)
  1. NUCYNTA ER [Suspect]
     Active Substance: TAPENTADOL HYDROCHLORIDE
     Indication: Product used for unknown indication
     Dosage: 100 MILLIGRAM (3-4 TABLETS)
     Route: 042
  2. ALPRAZOLAM [Concomitant]
     Active Substance: ALPRAZOLAM
     Indication: Product used for unknown indication
     Dosage: 0.5 MILLIGRAM (3-4 TABLETS)
     Route: 065
  3. NITRAZEPAM [Concomitant]
     Active Substance: NITRAZEPAM
     Indication: Product used for unknown indication
     Dosage: 10 MILLIGRAM, UNKNOWN
     Route: 065

REACTIONS (16)
  - Anaphylactoid reaction [Recovered/Resolved]
  - Anger [Recovered/Resolved]
  - Drug dependence [Unknown]
  - Hypnagogic hallucination [Recovered/Resolved]
  - Drug abuse [Recovered/Resolved]
  - Irritability [Recovered/Resolved]
  - Withdrawal syndrome [Recovered/Resolved]
  - Time perception altered [Recovered/Resolved]
  - Skin mass [Unknown]
  - Petechiae [Recovered/Resolved]
  - Superficial vein thrombosis [Unknown]
  - Skin hyperpigmentation [Unknown]
  - Scar [Unknown]
  - Euphoric mood [Recovered/Resolved]
  - Drug tolerance [Unknown]
  - Incorrect route of product administration [Unknown]
